FAERS Safety Report 10400993 (Version 1)
Quarter: 2014Q1

REPORT INFORMATION
  Report Type: Spontaneous
  Country: US (occurrence: None)
  Receive Date: 20130815
  Receipt Date: 20130815
  Transmission Date: 20141002
  Serious: Yes (Hospitalization, Other)
  Sender: FDA-Public Use
  Company Number: ADR-2013-00216

PATIENT
  Age: 55 Year
  Sex: Female

DRUGS (2)
  1. BACLOFEN INTRATHECAL [Suspect]
     Indication: MULTIPLE SCLEROSIS
  2. COMPOUNDED BACLOFEN [Concomitant]

REACTIONS (7)
  - Depressed level of consciousness [None]
  - Dyspnoea [None]
  - Injury [None]
  - Convulsion [None]
  - Somnolence [None]
  - Urinary tract infection [None]
  - Mental status changes [None]
